FAERS Safety Report 16678222 (Version 1)
Quarter: 2019Q3

REPORT INFORMATION
  Report Type: Spontaneous
  Country: US (occurrence: US)
  Receive Date: 20190621
  Receipt Date: 20190621
  Transmission Date: 20191004
  Serious: Yes (Life-Threatening, Other)
  Sender: FDA-Public Use
  Company Number: None

PATIENT
  Age: 64 Year
  Sex: Male

DRUGS (1)
  1. HEPARIN [Suspect]
     Active Substance: HEPARIN SODIUM
     Indication: CAROTID ARTERY STENT INSERTION
     Dosage: ?          OTHER FREQUENCY:PER HOUR ;?
     Route: 042

REACTIONS (3)
  - Heparin-induced thrombocytopenia [None]
  - Thrombosis [None]
  - Vascular graft occlusion [None]

NARRATIVE: CASE EVENT DATE: 20190523
